FAERS Safety Report 17504707 (Version 2)
Quarter: 2020Q2

REPORT INFORMATION
  Report Type: Spontaneous
  Country: LV (occurrence: LV)
  Receive Date: 20200305
  Receipt Date: 20200428
  Transmission Date: 20200713
  Serious: Yes (Hospitalization)
  Sender: FDA-Public Use
  Company Number: LV-JNJFOC-20200243421

PATIENT
  Sex: Female

DRUGS (4)
  1. PRESTALIA [Concomitant]
     Active Substance: AMLODIPINE BESYLATE\PERINDOPRIL ARGININE
     Dosage: 7 MG
  2. RIVAROXABAN [Suspect]
     Active Substance: RIVAROXABAN
     Dosage: 20 MG
     Route: 048
  3. RIVAROXABAN [Suspect]
     Active Substance: RIVAROXABAN
     Indication: ATRIAL FIBRILLATION
     Dosage: 20 MG
     Route: 048
     Dates: start: 20191220, end: 20200125
  4. BETAC [BETAXOLOL HYDROCHLORIDE] [Concomitant]
     Dosage: 10 MG

REACTIONS (5)
  - Pyrexia [Unknown]
  - Splenic rupture [Unknown]
  - Splenic haematoma [Unknown]
  - Hypertension [Unknown]
  - Abdominal pain [Unknown]

NARRATIVE: CASE EVENT DATE: 20200125
